FAERS Safety Report 7121985-9 (Version None)
Quarter: 2010Q4

REPORT INFORMATION
  Report Type: 
  Country: None (occurrence: None)
  Receive Date: 20101124
  Receipt Date: 20101116
  Transmission Date: 20110411
  Serious: Yes (Other)
  Sender: FDA-Public Use
  Company Number: A0881304A

PATIENT
  Age: 76 Year
  Sex: Male
  Weight: 92.3 kg

DRUGS (2)
  1. VOTRIENT [Suspect]
     Dosage: 800MG PER DAY
     Route: 048
     Dates: start: 20100521, end: 20100720
  2. NO CONCURRENT MEDICATION [Concomitant]

REACTIONS (8)
  - ALANINE AMINOTRANSFERASE INCREASED [None]
  - BLOOD BILIRUBIN INCREASED [None]
  - BLOOD PRESSURE INCREASED [None]
  - DECREASED APPETITE [None]
  - GASTROINTESTINAL DISORDER [None]
  - INTESTINAL DILATATION [None]
  - LIVER FUNCTION TEST ABNORMAL [None]
  - NAUSEA [None]
